FAERS Safety Report 19975981 (Version 1)
Quarter: 2021Q4

REPORT INFORMATION
  Report Type: Spontaneous
  Country: GB (occurrence: GB)
  Receive Date: 20211021
  Receipt Date: 20211021
  Transmission Date: 20220303
  Serious: Yes (Hospitalization)
  Sender: FDA-Public Use
  Company Number: GB-ABBVIE-21K-167-4125335-00

PATIENT
  Sex: Female

DRUGS (1)
  1. EPILIM [Suspect]
     Active Substance: VALPROATE SODIUM
     Indication: Epilepsy
     Route: 048
     Dates: start: 201903

REACTIONS (4)
  - Memory impairment [Unknown]
  - Malaise [Unknown]
  - Dizziness [Unknown]
  - Seizure [Unknown]

NARRATIVE: CASE EVENT DATE: 20190301
